FAERS Safety Report 24034113 (Version 1)
Quarter: 2024Q3

REPORT INFORMATION
  Report Type: Other
  Country: CZ (occurrence: CZ)
  Receive Date: 20240701
  Receipt Date: 20240701
  Transmission Date: 20241017
  Serious: Yes (Other)
  Sender: EMD SERONO INC
  Company Number: CZ-Merck Healthcare KGaA-2024033861

PATIENT
  Age: 74 Year
  Sex: Male

DRUGS (1)
  1. METFORMIN [Suspect]
     Active Substance: METFORMIN HYDROCHLORIDE
     Indication: Product used for unknown indication

REACTIONS (3)
  - Weight decreased [Recovering/Resolving]
  - Diarrhoea [Unknown]
  - Vitamin B12 deficiency [Unknown]
